FAERS Safety Report 8585592-3 (Version None)
Quarter: 2012Q3

REPORT INFORMATION
  Report Type: 
  Country: None (occurrence: None)
  Receive Date: 20120810
  Receipt Date: 20120802
  Transmission Date: 20120928
  Serious: Yes (Death)
  Sender: FDA-Public Use
  Company Number: US-COVIDIEN/TYCO HEALTHCARE/MALLINCKRODT-T201202995

PATIENT
  Age: 17 Year
  Sex: Female

DRUGS (4)
  1. CARISOPRODOL [Suspect]
     Dosage: UNK
  2. OXYCODONE HCL [Suspect]
     Dosage: UNK
  3. METHADOSE [Suspect]
     Dosage: UNK
  4. HYDROCODONE BITARTRATE [Suspect]
     Dosage: UNK

REACTIONS (1)
  - DEATH [None]
